FAERS Safety Report 4286225-7 (Version None)
Quarter: 2004Q1

REPORT INFORMATION
  Report Type: 
  Country: None (occurrence: None)
  Receive Date: 20040202
  Receipt Date: 20040122
  Transmission Date: 20041129
  Serious: Yes (Hospitalization)
  Sender: FDA-Public Use
  Company Number: 200410196EU

PATIENT
  Age: 56 Year
  Sex: Female

DRUGS (6)
  1. FUROSEMIDE [Suspect]
     Dosage: 40 MG/DAY PO
     Route: 048
     Dates: start: 20030611, end: 20030701
  2. ALDACTONE [Concomitant]
  3. NORFLOXACIN (NOROXIN) [Concomitant]
  4. LANSOPRAZOLE (ESTIMOL) [Concomitant]
  5. DUPHALAC [Concomitant]
  6. ALPRAZOLAM (TRANKINMAZIN) [Concomitant]

REACTIONS (2)
  - CONSTIPATION [None]
  - ENCEPHALOPATHY [None]
